FAERS Safety Report 20981745 (Version 2)
Quarter: 2022Q2

REPORT INFORMATION
  Report Type: Spontaneous
  Country: US (occurrence: US)
  Receive Date: 20220620
  Receipt Date: 20220621
  Transmission Date: 20220721
  Serious: No
  Sender: FDA-Public Use
  Company Number: US-PFIZER INC-202200850996

PATIENT
  Age: 56 Year
  Sex: Female
  Weight: 56.7 kg

DRUGS (1)
  1. PAXLOVID [Suspect]
     Active Substance: NIRMATRELVIR\RITONAVIR
     Indication: COVID-19 treatment
     Dosage: UNK, 2X/DAY(STANDARD DOSE, TAKE EACH PACK TWICE A DAY, ONCE IN THE MORNING ONCE AT NIGHT.)
     Dates: start: 20220612, end: 20220616

REACTIONS (4)
  - Faeces discoloured [Not Recovered/Not Resolved]
  - Condition aggravated [Not Recovered/Not Resolved]
  - Constipation [Unknown]
  - Dysbiosis [Unknown]
